FAERS Safety Report 14877921 (Version 1)
Quarter: 2018Q2

REPORT INFORMATION
  Report Type: Report from Study
  Country: None (occurrence: CA)
  Receive Date: 20180510
  Receipt Date: 20180510
  Transmission Date: 20180711
  Serious: Yes (Other)
  Sender: FDA-Public Use
  Company Number: CA-ABBVIE-18K-028-2346645-00

PATIENT
  Age: 71 Year
  Sex: Male

DRUGS (1)
  1. HUMIRA [Suspect]
     Active Substance: ADALIMUMAB
     Indication: RHEUMATOID ARTHRITIS
     Route: 058
     Dates: start: 20120815, end: 2017

REACTIONS (6)
  - Hip arthroplasty [Unknown]
  - Surgery [Unknown]
  - Surgery [Unknown]
  - Cataract [Unknown]
  - Surgery [Unknown]
  - Hernia [Unknown]

NARRATIVE: CASE EVENT DATE: 20170516
